FAERS Safety Report 9166311 (Version 3)
Quarter: 2013Q2

REPORT INFORMATION
  Report Type: Report from Study
  Country: US (occurrence: US)
  Receive Date: 20130315
  Receipt Date: 20130508
  Transmission Date: 20140414
  Serious: Yes (Other)
  Sender: FDA-Public Use
  Company Number: US-TEVA-391849USA

PATIENT
  Age: 22 Year
  Sex: Female

DRUGS (2)
  1. CLARAVIS [Suspect]
     Dosage: 30 MILLIGRAM DAILY;
     Route: 048
     Dates: start: 20120522, end: 20121221
  2. BIRTH CONTROL PILLS [Concomitant]

REACTIONS (1)
  - Unintended pregnancy [Unknown]
